FAERS Safety Report 8957004 (Version 1)
Quarter: 2012Q4

REPORT INFORMATION
  Report Type: 
  Country: FR (occurrence: FR)
  Receive Date: 20121210
  Receipt Date: 20121210
  Transmission Date: 20130627
  Serious: Yes (Hospitalization, Other)
  Sender: FDA-Public Use
  Company Number: FR-ROCHE-1164543

PATIENT
  Age: 57 Year
  Sex: Female

DRUGS (21)
  1. XOLAIR [Suspect]
     Indication: ASTHMA
     Route: 058
     Dates: start: 20111007, end: 20120109
  2. SERETIDE [Concomitant]
  3. FORADIL [Concomitant]
  4. RULID [Concomitant]
  5. PIVALONE [Concomitant]
  6. WYSTAMM [Concomitant]
  7. AIROMIR [Concomitant]
  8. COLCHICIN [Concomitant]
  9. BRICANYL [Concomitant]
  10. ATROVENT [Concomitant]
  11. DESLORATADINE [Concomitant]
  12. LEVOTHYROX [Concomitant]
  13. ZELITREX [Concomitant]
  14. XANAX [Concomitant]
  15. NOCTRAN [Concomitant]
  16. LEXOMIL [Concomitant]
  17. ADARTREL [Concomitant]
  18. LYRICA [Concomitant]
  19. SEROPLEX [Concomitant]
  20. METEOSPASMYL [Concomitant]
  21. IMODIUM [Concomitant]

REACTIONS (8)
  - Back pain [Not Recovered/Not Resolved]
  - Blood creatine phosphokinase increased [Unknown]
  - Sciatica [Unknown]
  - Osteoarthritis [Unknown]
  - Musculoskeletal pain [Unknown]
  - Drug tolerance [Unknown]
  - Arthralgia [Unknown]
  - Myalgia [Unknown]
